FAERS Safety Report 4895924-5 (Version None)
Quarter: 2006Q1

REPORT INFORMATION
  Report Type: 
  Country: None (occurrence: None)
  Receive Date: 20060125
  Receipt Date: 20060116
  Transmission Date: 20060701
  Serious: Yes (Death)
  Sender: FDA-Public Use
  Company Number: 2005JP002485

PATIENT
  Age: 66 Year
  Sex: Male
  Weight: 62 kg

DRUGS (12)
  1. FUNGUARD (MICAFUNGIN INJECTION) [Suspect]
     Indication: SYSTEMIC CANDIDA
     Dosage: 50 MG, UID/QD, IV DRIP; 100 MG, UID/QD, IV DRIP
     Route: 041
     Dates: start: 20050602, end: 20050604
  2. NEOPAREN (AMINO ACIDS/ELECTROLYTES/CARBOHYDRATES/VITAMIN) [Concomitant]
  3. FOY (GABEXATE MESILATE) [Concomitant]
  4. ELASPOL (SIVELESTAT) [Concomitant]
  5. BISOLVON (BROMHEXINE HYDROCHLORIDE) [Concomitant]
  6. VANCOMYCIN [Concomitant]
  7. CALCICOL (CALCIUM GLUCONATE) [Concomitant]
  8. STRONG NEO-MINOPHAGEN C (AMINOACETIC ACID, GLYCYRRHIZIC ACID, CYSTEINE [Concomitant]
  9. NOVOLIN R [Concomitant]
  10. CARBENIN (BETAMIPRON, PANIPENEM) [Concomitant]
  11. RED BLOOD CELLS [Concomitant]
  12. PLATELETS [Concomitant]

REACTIONS (8)
  - ABDOMINAL ABSCESS [None]
  - DIALYSIS [None]
  - HEPATIC FAILURE [None]
  - PLATELET COUNT DECREASED [None]
  - POSTOPERATIVE ABSCESS [None]
  - RED BLOOD CELL COUNT DECREASED [None]
  - RENAL FAILURE [None]
  - SEPSIS [None]
